FAERS Safety Report 4365117-9 (Version None)
Quarter: 2004Q2

REPORT INFORMATION
  Report Type: 
  Country: None (occurrence: None)
  Receive Date: 20040521
  Receipt Date: 20040510
  Transmission Date: 20050107
  Serious: Yes (Other)
  Sender: FDA-Public Use
  Company Number: STA-AE-04-MTX-189

PATIENT
  Age: 55 Year
  Sex: Male

DRUGS (2)
  1. METHOTREXATE [Suspect]
     Indication: RHEUMATOID ARTHRITIS
     Dosage: ORAL
     Route: 048
  2. ENBREL [Suspect]
     Indication: RHEUMATOID ARTHRITIS
     Dosage: SC
     Route: 058
     Dates: start: 20030101, end: 20040101

REACTIONS (2)
  - LYMPHOCYTE MORPHOLOGY ABNORMAL [None]
  - LYMPHOMA [None]
